FAERS Safety Report 9822097 (Version 1)
Quarter: 2014Q1

REPORT INFORMATION
  Report Type: Spontaneous
  Country: TW (occurrence: TW)
  Receive Date: 20140116
  Receipt Date: 20140116
  Transmission Date: 20141002
  Serious: Yes (Death, Other)
  Sender: FDA-Public Use
  Company Number: TW-PFIZER INC-2014013145

PATIENT
  Sex: Female

DRUGS (1)
  1. DILANTIN [Suspect]

REACTIONS (7)
  - Death [Fatal]
  - Stevens-Johnson syndrome [Unknown]
  - Generalised erythema [Unknown]
  - Swelling [Unknown]
  - Infection [Unknown]
  - Pruritus [Unknown]
  - Insomnia [Unknown]
